FAERS Safety Report 9416417 (Version 1)
Quarter: 2013Q3

REPORT INFORMATION
  Report Type: Spontaneous
  Country: US (occurrence: US)
  Receive Date: 20130724
  Receipt Date: 20130724
  Transmission Date: 20140515
  Serious: No
  Sender: FDA-Public Use
  Company Number: US-PFIZER INC-2013214281

PATIENT
  Age: 65 Year
  Sex: Male

DRUGS (1)
  1. SUTENT [Suspect]
     Indication: THYROID CANCER
     Dosage: 50 MG, UNK
     Dates: start: 20121005, end: 20130718

REACTIONS (3)
  - Off label use [Unknown]
  - Disease progression [Unknown]
  - Thyroid cancer [Unknown]
